FAERS Safety Report 16122010 (Version 1)
Quarter: 2019Q1

REPORT INFORMATION
  Report Type: Spontaneous
  Country: US (occurrence: US)
  Receive Date: 20190327
  Receipt Date: 20190327
  Transmission Date: 20190418
  Serious: No
  Sender: FDA-Public Use
  Company Number: US-PFIZER INC-2019127295

PATIENT
  Age: 67 Year
  Sex: Female

DRUGS (3)
  1. GABAPENTIN. [Suspect]
     Active Substance: GABAPENTIN
     Dosage: 900 MG, 3X/DAY; [3 CAPS THREE TIMES A DAY FOR 7 DAYS]
     Route: 048
     Dates: start: 201903
  2. GABAPENTIN. [Suspect]
     Active Substance: GABAPENTIN
     Dosage: 600 MG, 3X/DAY; [2 CAPS THREE TIMES A DAY FOR 7 DAYS]
     Route: 048
     Dates: start: 201903
  3. GABAPENTIN. [Suspect]
     Active Substance: GABAPENTIN
     Indication: NEUROPATHY PERIPHERAL
     Dosage: 300 MG, 3X/DAY; [SIG: 1 CAPSULE ORALLY THREE TIMES A DAY FOR 7 DAYS]
     Route: 048
     Dates: start: 20190306

REACTIONS (3)
  - Product use in unapproved indication [Unknown]
  - Hypoaesthesia [Unknown]
  - Prescribed overdose [Unknown]

NARRATIVE: CASE EVENT DATE: 201903
